FAERS Safety Report 5316213-0 (Version None)
Quarter: 2007Q2

REPORT INFORMATION
  Report Type: 
  Country: None (occurrence: None)
  Receive Date: 20070503
  Receipt Date: 20070425
  Transmission Date: 20071010
  Serious: Yes (Death, Other)
  Sender: FDA-Public Use
  Company Number: MY-ROXANE LABORATORIES, INC-2007-BP-05656RO

PATIENT
  Age: 40 Year
  Sex: Male

DRUGS (3)
  1. METHOTREXATE [Suspect]
     Indication: CHEMOTHERAPY
     Route: 042
     Dates: start: 20050301, end: 20050601
  2. METHOTREXATE [Suspect]
     Route: 037
     Dates: start: 20050301, end: 20050601
  3. ARA-C [Suspect]
     Indication: CHEMOTHERAPY
     Route: 037
     Dates: start: 20050301, end: 20050601

REACTIONS (5)
  - GLASGOW COMA SCALE ABNORMAL [None]
  - MYELOPATHY [None]
  - PARAPLEGIA [None]
  - RESPIRATORY DISTRESS [None]
  - URINARY RETENTION [None]
